FAERS Safety Report 26207837 (Version 1)
Quarter: 2025Q4

REPORT INFORMATION
  Report Type: Report from Study
  Country: US (occurrence: US)
  Receive Date: 20251229
  Receipt Date: 20251229
  Transmission Date: 20260117
  Serious: Yes (Other)
  Sender: BAYER HEALTHCARE PHARMACEUTICALS INC.
  Company Number: US-BAYER-2025A063408

PATIENT
  Age: 62 Year
  Sex: Male

DRUGS (8)
  1. NUBEQA [Suspect]
     Active Substance: DAROLUTAMIDE
     Indication: Prostate cancer
     Dosage: 600 MG, BID
     Route: 048
  2. NUBEQA [Suspect]
     Active Substance: DAROLUTAMIDE
     Indication: Prostate cancer
     Dosage: 600 MG, QD
     Route: 048
  3. CIPROFLOXACIN [Suspect]
     Active Substance: CIPROFLOXACIN
     Dosage: 500 MG, QD
  4. ORGOVYX [Suspect]
     Active Substance: RELUGOLIX
     Dosage: UNK
  5. PHENAZOPYRIDINE [Suspect]
     Active Substance: PHENAZOPYRIDINE
     Dosage: 200 MG, QD
  6. TAMSULOSIN [Concomitant]
     Active Substance: TAMSULOSIN
     Dosage: UNK
  7. ASPIRIN [Concomitant]
     Active Substance: ASPIRIN
     Dosage: UNK
  8. TADALAFIL [Concomitant]
     Active Substance: TADALAFIL
     Dosage: UNK

REACTIONS (8)
  - Drug hypersensitivity [Recovered/Resolved]
  - Eye swelling [Recovered/Resolved]
  - Lip swelling [Recovered/Resolved]
  - Pharyngeal swelling [Recovered/Resolved]
  - Rash macular [Recovered/Resolved]
  - Aphonia [Recovered/Resolved]
  - Hot flush [Not Recovered/Not Resolved]
  - Cold flash [Not Recovered/Not Resolved]
